FAERS Safety Report 24380172 (Version 1)
Quarter: 2024Q3

REPORT INFORMATION
  Report Type: Spontaneous
  Country: US (occurrence: US)
  Receive Date: 20240930
  Receipt Date: 20240930
  Transmission Date: 20241017
  Serious: No
  Sender: MYLAN
  Company Number: US-MYLANLABS-2024M1085499

PATIENT

DRUGS (1)
  1. BREYNA [Suspect]
     Active Substance: BUDESONIDE\FORMOTEROL FUMARATE
     Indication: Asthma
     Dosage: UNK
     Route: 055

REACTIONS (6)
  - Throat irritation [Unknown]
  - Pulmonary function test decreased [Unknown]
  - Oxygen saturation decreased [Unknown]
  - Therapeutic response changed [Unknown]
  - Product quality issue [Unknown]
  - Product substitution issue [Unknown]
